FAERS Safety Report 4988851-6 (Version None)
Quarter: 2006Q2

REPORT INFORMATION
  Report Type: 
  Country: None (occurrence: None)
  Receive Date: 20060502
  Receipt Date: 20051014
  Transmission Date: 20061013
  Serious: Yes (Hospitalization)
  Sender: FDA-Public Use
  Company Number: US-MERCK-0510USA07483

PATIENT
  Age: 65 Year
  Sex: Male
  Weight: 76 kg

DRUGS (17)
  1. TYLENOL (CAPLET) [Concomitant]
     Route: 065
     Dates: start: 20020403
  2. ZYBAN [Concomitant]
     Indication: EX-SMOKER
     Route: 065
  3. VIOXX [Suspect]
     Indication: ARTHRALGIA
     Route: 048
     Dates: start: 20001227, end: 20040930
  4. VIOXX [Suspect]
     Route: 048
     Dates: start: 20011001, end: 20040730
  5. VIOXX [Suspect]
     Route: 048
     Dates: start: 20011001, end: 20040730
  6. VIOXX [Suspect]
     Indication: ARTHRITIS
     Route: 048
     Dates: start: 20001227, end: 20040930
  7. VIOXX [Suspect]
     Route: 048
     Dates: start: 20011001, end: 20040730
  8. VIOXX [Suspect]
     Route: 048
     Dates: start: 20011001, end: 20040730
  9. ALPHAGAN [Concomitant]
     Route: 065
  10. VEETIDS [Concomitant]
     Route: 065
  11. TYLENOL W/ CODEINE [Concomitant]
     Route: 065
     Dates: start: 20020319, end: 20020407
  12. BETIMOL [Concomitant]
     Route: 065
  13. VIAGRA [Concomitant]
     Indication: ERECTILE DYSFUNCTION
     Route: 065
  14. TRIACIN-C [Concomitant]
     Route: 065
  15. PILOCARPINE [Concomitant]
     Route: 065
  16. PROMETH VC WITH CODEINE [Concomitant]
     Route: 065
  17. TRAVATAN [Concomitant]
     Route: 065

REACTIONS (9)
  - BLOOD CHOLESTEROL INCREASED [None]
  - CEREBROVASCULAR ACCIDENT [None]
  - CHEST DISCOMFORT [None]
  - DYSPEPSIA [None]
  - HEMIPARESIS [None]
  - HYPERCHOLESTEROLAEMIA [None]
  - HYPERTENSION [None]
  - MYOCARDIAL INFARCTION [None]
  - STENT OCCLUSION [None]
